FAERS Safety Report 15976853 (Version 1)
Quarter: 2019Q1

REPORT INFORMATION
  Report Type: Spontaneous
  Country: GB (occurrence: GB)
  Receive Date: 20190218
  Receipt Date: 20190218
  Transmission Date: 20190418
  Serious: Yes (Death, Life-Threatening, Hospitalization)
  Sender: FDA-Public Use
  Company Number: GB-TEVA-2019-GB-1012345

PATIENT
  Age: 9 Year
  Sex: Female
  Weight: 30 kg

DRUGS (13)
  1. BASILIXIMAB [Suspect]
     Active Substance: BASILIXIMAB
     Indication: RENAL TRANSPLANT
     Dosage: 10MG 2 HOURS PRE-TRANSPLANT AND DAY 4 POST-TRANSPLANT STAT DOSE
     Dates: start: 20181113, end: 20181117
  2. TACROLIMUS. [Suspect]
     Active Substance: TACROLIMUS
     Indication: RENAL TRANSPLANT
     Dosage: 1 MILLIGRAM DAILY; ADJUSTED AS PER TROUGH LEVEL
     Route: 048
     Dates: start: 20181112
  3. HYDRALAZINE [Concomitant]
     Active Substance: HYDRALAZINE HYDROCHLORIDE
  4. ZOTON [Concomitant]
     Active Substance: LANSOPRAZOLE
  5. SERETIDE [Concomitant]
     Active Substance: FLUTICASONE PROPIONATE\SALMETEROL XINAFOATE
  6. CELLCEPT [Suspect]
     Active Substance: MYCOPHENOLATE MOFETIL\MYCOPHENOLATE MOFETIL HYDROCHLORIDE
     Indication: RENAL TRANSPLANT
     Dosage: 1200 MILLIGRAM DAILY;
     Route: 048
     Dates: start: 20181113, end: 20181120
  7. NEORECORMON [Concomitant]
     Active Substance: ERYTHROPOIETIN
  8. AMLODIPINE [Concomitant]
     Active Substance: AMLODIPINE BESYLATE
  9. ZITHROMAX [Concomitant]
     Active Substance: AZITHROMYCIN DIHYDRATE
  10. ONDANSETRON HYDROCHLORIDE. [Concomitant]
     Active Substance: ONDANSETRON HYDROCHLORIDE
  11. ALFACALCIDOL [Concomitant]
     Active Substance: ALFACALCIDOL
  12. VENOFER [Concomitant]
     Active Substance: IRON SUCROSE
  13. RANITIDINE. [Concomitant]
     Active Substance: RANITIDINE

REACTIONS (11)
  - Tachycardia [Fatal]
  - Blood pressure increased [Fatal]
  - Colitis [Fatal]
  - Colitis [Fatal]
  - Gastrointestinal sounds abnormal [Fatal]
  - Ileus [Fatal]
  - Abdominal distension [Fatal]
  - Malaise [Fatal]
  - Abdominal pain [Fatal]
  - Urine output decreased [Fatal]
  - Fluid retention [Fatal]

NARRATIVE: CASE EVENT DATE: 20181116
